FAERS Safety Report 4622907-2 (Version None)
Quarter: 2005Q1

REPORT INFORMATION
  Report Type: 
  Country: None (occurrence: None)
  Receive Date: 20050329
  Receipt Date: 20050303
  Transmission Date: 20050727
  Serious: Yes (Death)
  Sender: FDA-Public Use
  Company Number: 10475

PATIENT
  Age: 14 Year
  Sex: Female

DRUGS (5)
  1. METHOTREXATE [Suspect]
     Indication: BURKITT'S LYMPHOMA
     Dosage: IT
     Route: 037
  2. VINCRISTINE [Concomitant]
  3. CYCLOPHOSPHAMIDE [Concomitant]
  4. PREDNISONE TAB [Concomitant]
  5. HYDROCORTISONE [Concomitant]

REACTIONS (5)
  - DIARRHOEA [None]
  - DRUG TOXICITY [None]
  - ELECTROLYTE IMBALANCE [None]
  - PYREXIA [None]
  - VOMITING [None]
